FAERS Safety Report 12218580 (Version 2)
Quarter: 2016Q2

REPORT INFORMATION
  Report Type: Spontaneous
  Country: CZ (occurrence: CZ)
  Receive Date: 20160329
  Receipt Date: 20160401
  Transmission Date: 20160815
  Serious: Yes (Hospitalization, Other)
  Sender: FDA-Public Use
  Company Number: CZ-PFIZER INC-2016144352

PATIENT
  Age: 32 Year
  Sex: Male

DRUGS (1)
  1. ATROPINE SULFATE. [Suspect]
     Active Substance: ATROPINE SULFATE
     Dosage: 60 MG, UNK

REACTIONS (6)
  - Toxicity to various agents [Recovered/Resolved]
  - Meningism [Recovered/Resolved]
  - Pyramidal tract syndrome [Recovered/Resolved]
  - Anticholinergic syndrome [Recovered/Resolved]
  - Neurotoxicity [Recovered/Resolved]
  - Abdominal pain [Recovered/Resolved]

NARRATIVE: CASE EVENT DATE: 19510915
